FAERS Safety Report 17624599 (Version 2)
Quarter: 2020Q2

REPORT INFORMATION
  Report Type: Spontaneous
  Country: AU (occurrence: AU)
  Receive Date: 20200403
  Receipt Date: 20200408
  Transmission Date: 20200713
  Serious: Yes (Other)
  Sender: FDA-Public Use
  Company Number: AU-PFIZER INC-2020138122

PATIENT
  Age: 74 Year
  Sex: Female

DRUGS (4)
  1. PLAVIX [Suspect]
     Active Substance: CLOPIDOGREL BISULFATE
     Indication: CEREBROVASCULAR ACCIDENT
     Dosage: UNK
  2. SOMAC [Suspect]
     Active Substance: PANTOPRAZOLE SODIUM
     Indication: BARRETT^S OESOPHAGUS
     Dosage: 40 MG, UNK
  3. CRESTOR [Suspect]
     Active Substance: ROSUVASTATIN CALCIUM
     Dosage: UNK
     Route: 065
  4. BIOTENE ORAL BALANCE [Suspect]
     Active Substance: DEVICE\XYLITOL
     Indication: DRY MOUTH
     Dosage: UNK

REACTIONS (13)
  - Cerebrovascular accident [Unknown]
  - Dry eye [Unknown]
  - Dry mouth [Unknown]
  - Off label use [Unknown]
  - Fatigue [Unknown]
  - Pollakiuria [Unknown]
  - Asthenia [Unknown]
  - Malaise [Unknown]
  - Pruritus [Unknown]
  - Tremor [Unknown]
  - Flatulence [Unknown]
  - Sjogren^s syndrome [Unknown]
  - Palpitations [Unknown]
